FAERS Safety Report 22014783 (Version 2)
Quarter: 2023Q1

REPORT INFORMATION
  Report Type: Other
  Country: PK (occurrence: None)
  Receive Date: 20230221
  Receipt Date: 20230316
  Transmission Date: 20230418
  Serious: Yes (Other)
  Sender: FDA-Public Use
  Company Number: PK-ROCHE-3287757

PATIENT
  Age: 67 Year
  Sex: Female

DRUGS (2)
  1. TECENTRIQ [Suspect]
     Active Substance: ATEZOLIZUMAB
     Indication: Hepatocellular carcinoma
     Dosage: TECENTRIQ 1200MG FOR 12 CYCLES 3 WEEKLY IN HCC
     Route: 042
     Dates: start: 20220824
  2. AVASTIN [Suspect]
     Active Substance: BEVACIZUMAB
     Indication: Hepatocellular carcinoma
     Dosage: AVASTIN 600MG FOR 12 CYCLES 3 WEEKLY IN HCC
     Route: 042
     Dates: start: 20220824, end: 20230201

REACTIONS (2)
  - Faeces discoloured [Unknown]
  - Gastric ulcer [Unknown]

NARRATIVE: CASE EVENT DATE: 20230201
